FAERS Safety Report 12280450 (Version 2)
Quarter: 2016Q3

REPORT INFORMATION
  Report Type: Report from Study
  Country: US (occurrence: US)
  Receive Date: 20160419
  Receipt Date: 20160720
  Transmission Date: 20161109
  Serious: Yes (Hospitalization)
  Sender: FDA-Public Use
  Company Number: US-ASTRAZENECA-2016SE39548

PATIENT
  Sex: Female
  Weight: 74.8 kg

DRUGS (14)
  1. BENZONATATE. [Concomitant]
     Active Substance: BENZONATATE
     Indication: COUGH
  2. DALIRESP [Suspect]
     Active Substance: ROFLUMILAST
     Indication: CHRONIC OBSTRUCTIVE PULMONARY DISEASE
     Route: 048
  3. PROAIR HFA [Concomitant]
     Active Substance: ALBUTEROL SULFATE
     Dosage: AS REQUIRED
  4. AMLODIPINE BYSELATE [Concomitant]
     Indication: BLOOD PRESSURE ABNORMAL
  5. TRAMADOL. [Concomitant]
     Active Substance: TRAMADOL
     Indication: PAIN
     Dosage: EVERY SIX HOURS
  6. SERTRALINE [Concomitant]
     Active Substance: SERTRALINE HYDROCHLORIDE
     Indication: ANTIDEPRESSANT THERAPY
  7. THEOPHYLLINE [Concomitant]
     Active Substance: THEOPHYLLINE ANHYDROUS
     Indication: CHRONIC OBSTRUCTIVE PULMONARY DISEASE
  8. PHENYTOIN SODIUM. [Concomitant]
     Active Substance: PHENYTOIN SODIUM
     Indication: SEIZURE
  9. PREVACID [Concomitant]
     Active Substance: LANSOPRAZOLE
     Indication: BARRETT^S OESOPHAGUS
  10. HYDROCHLORTHIAZIDE [Concomitant]
     Active Substance: HYDROCHLOROTHIAZIDE
     Indication: BLOOD PRESSURE ABNORMAL
  11. TUMS [Concomitant]
     Active Substance: CALCIUM CARBONATE
     Indication: BARRETT^S OESOPHAGUS
  12. SYMBICORT [Suspect]
     Active Substance: BUDESONIDE\FORMOTEROL FUMARATE DIHYDRATE
     Indication: CHRONIC OBSTRUCTIVE PULMONARY DISEASE
     Dosage: 160/4.5 MCG, 2 PUFFS TWICE DAILY
     Route: 055
  13. IPRATROPRIUM BROMIDE ALBUTEROL SULFATE [Concomitant]
     Indication: DYSPNOEA
     Dosage: EVERY FOUR HOURS
  14. FERROUS SULFATE. [Concomitant]
     Active Substance: FERROUS SULFATE
     Indication: ANAEMIA

REACTIONS (8)
  - Pneumonia [Unknown]
  - Hypotension [Unknown]
  - Clostridium difficile colitis [Unknown]
  - Septic shock [Unknown]
  - Cough [Unknown]
  - Malaise [Unknown]
  - Dyspnoea [Unknown]
  - Oxygen consumption decreased [Unknown]
